FAERS Safety Report 7004941-0 (Version None)
Quarter: 2010Q3

REPORT INFORMATION
  Report Type: 
  Country: None (occurrence: None)
  Receive Date: 20100920
  Receipt Date: 20100920
  Transmission Date: 20110219
  Serious: Yes (Hospitalization)
  Sender: FDA-Public Use
  Company Number: None

PATIENT
  Sex: Male
  Weight: 14 kg

DRUGS (1)
  1. BENEFIX [Suspect]
     Indication: FACTOR IX DEFICIENCY
     Dosage: ONCE IV
     Route: 042
     Dates: start: 20100910

REACTIONS (5)
  - INFUSION RELATED REACTION [None]
  - LETHARGY [None]
  - NAUSEA [None]
  - URTICARIA [None]
  - VOMITING [None]
